FAERS Safety Report 5292147-5 (Version None)
Quarter: 2007Q2

REPORT INFORMATION
  Report Type: 
  Country: None (occurrence: None)
  Receive Date: 20070410
  Receipt Date: 20070330
  Transmission Date: 20071010
  Serious: Yes (Other)
  Sender: FDA-Public Use
  Company Number: JP-GLAXOSMITHKLINE-B0461069A

PATIENT
  Age: 13 Year
  Sex: Female
  Weight: 47 kg

DRUGS (3)
  1. RELENZA [Suspect]
     Indication: INFLUENZA
     Dosage: 10MG TWICE PER DAY
     Route: 055
     Dates: start: 20070302, end: 20070303
  2. DASEN [Concomitant]
     Indication: UPPER RESPIRATORY TRACT INFLAMMATION
     Dosage: 20MG PER DAY
     Route: 048
     Dates: start: 20070302, end: 20070309
  3. MUCOSOLVAN [Concomitant]
     Indication: UPPER RESPIRATORY TRACT INFLAMMATION
     Dosage: 30MG PER DAY
     Route: 048
     Dates: start: 20070302, end: 20070309

REACTIONS (4)
  - AGITATION [None]
  - CONVULSION [None]
  - DYSARTHRIA [None]
  - IMPULSIVE BEHAVIOUR [None]
